FAERS Safety Report 7955750-7 (Version None)
Quarter: 2011Q4

REPORT INFORMATION
  Report Type: 
  Country: None (occurrence: None)
  Receive Date: 20111204
  Receipt Date: 20080111
  Transmission Date: 20120403
  Serious: Yes (Other)
  Sender: FDA-Public Use
  Company Number: PHHY2008NZ043740

PATIENT
  Sex: Male

DRUGS (1)
  1. EXELON [Suspect]

REACTIONS (6)
  - COMMUNICATION DISORDER [None]
  - HEADACHE [None]
  - EYE MOVEMENT DISORDER [None]
  - MUSCULOSKELETAL STIFFNESS [None]
  - HYPERHIDROSIS [None]
  - TRANSIENT ISCHAEMIC ATTACK [None]
